FAERS Safety Report 20790840 (Version 2)
Quarter: 2022Q3

REPORT INFORMATION
  Report Type: Spontaneous
  Country: CA (occurrence: CA)
  Receive Date: 20220505
  Receipt Date: 20220715
  Transmission Date: 20221027
  Serious: Yes (Death, Other)
  Sender: FDA-Public Use
  Company Number: CA-HLS-202200889

PATIENT
  Age: 74 Year
  Sex: Male
  Weight: 145 kg

DRUGS (1)
  1. CLOZAPINE [Suspect]
     Active Substance: CLOZAPINE
     Indication: Product used for unknown indication
     Route: 065

REACTIONS (5)
  - Atrial fibrillation [Fatal]
  - Death [Fatal]
  - Epilepsy [Fatal]
  - Myocardial infarction [Fatal]
  - Organ failure [Fatal]
